FAERS Safety Report 5132883-4 (Version None)
Quarter: 2006Q4

REPORT INFORMATION
  Report Type: 
  Country: None (occurrence: None)
  Receive Date: 20061019
  Receipt Date: 20061019
  Transmission Date: 20070319
  Serious: Yes (Other)
  Sender: FDA-Public Use
  Company Number: None

PATIENT
  Age: 54 Year
  Sex: Male

DRUGS (11)
  1. REVLIMID [Suspect]
     Indication: LYMPHOPLASMACYTOID LYMPHOMA/IMMUNOCYTOMA
     Dosage: 25MG DAILY FOR 21D Q28D PO
     Route: 048
     Dates: start: 20060821, end: 20060917
  2. REVLIMID [Suspect]
     Dosage: 15MG DAILY FOR 21 D Q 28D PO
     Route: 048
     Dates: start: 20060918, end: 20061015
  3. PROCRIT [Concomitant]
  4. ENDOCET [Concomitant]
  5. TEMAZEPAM [Concomitant]
  6. PROCHLORPERAZINE [Concomitant]
  7. VELCADE [Concomitant]
  8. AVELOX [Concomitant]
  9. HYDROXYZINE [Concomitant]
  10. AUGMENTIN '125' [Concomitant]
  11. CIPRO [Concomitant]

REACTIONS (2)
  - PLATELET COUNT DECREASED [None]
  - WHITE BLOOD CELL COUNT DECREASED [None]
